FAERS Safety Report 19812686 (Version 1)
Quarter: 2021Q3

REPORT INFORMATION
  Report Type: Spontaneous
  Country: US (occurrence: US)
  Receive Date: 20210909
  Receipt Date: 20210909
  Transmission Date: 20211014
  Serious: No
  Sender: FDA-Public Use
  Company Number: US-BAUSCH-BL-2021-029108

PATIENT
  Age: 47 Year
  Sex: Female

DRUGS (1)
  1. BUPROPION XL [Suspect]
     Active Substance: BUPROPION
     Indication: DEPRESSION
     Dosage: APPROXIMATELY 12 YEARS AGO
     Route: 065

REACTIONS (2)
  - Drug ineffective [Unknown]
  - Night sweats [Recovered/Resolved]
